FAERS Safety Report 16687316 (Version 1)
Quarter: 2019Q3

REPORT INFORMATION
  Report Type: Spontaneous
  Country: US (occurrence: US)
  Receive Date: 20190809
  Receipt Date: 20190809
  Transmission Date: 20191004
  Serious: No
  Sender: FDA-Public Use
  Company Number: US-TARO-2019TAR00147

PATIENT
  Age: 64 Year
  Sex: Female
  Weight: 69.84 kg

DRUGS (6)
  1. ASPIRIN. [Concomitant]
     Active Substance: ASPIRIN
     Dosage: UNK, AS NEEDED (APPROXIMATELY 3 TIMES PER MONTH)
  2. VITAMIN C [Concomitant]
     Active Substance: ASCORBIC ACID
  3. XALATAN [Concomitant]
     Active Substance: LATANOPROST
     Dosage: 2 DROP (1 DROP IN EACH EYE), 1X/DAY AT BEDTIME
     Dates: start: 2002
  4. MULTIVITAMIN [Concomitant]
     Active Substance: VITAMINS
     Dosage: UNK, 1X/DAY
  5. TYLENOL [Concomitant]
     Active Substance: ACETAMINOPHEN
     Dosage: UNK, AS NEEDED (APPROXIMATELY 3 TIMES PER MONTH)
  6. CLOBETASOL PROPIONATE OINTMENT USP 0.05% [Suspect]
     Active Substance: CLOBETASOL PROPIONATE
     Indication: LICHEN PLANUS
     Dosage: A PEA SIZED AMOUNT, 1X/DAY AT NIGHT
     Dates: start: 20190205, end: 20190218

REACTIONS (7)
  - Vulvovaginal dryness [Not Recovered/Not Resolved]
  - Product lot number issue [Not Recovered/Not Resolved]
  - Application site pain [Not Recovered/Not Resolved]
  - Vulvovaginal discomfort [Not Recovered/Not Resolved]
  - Product administered at inappropriate site [Recovered/Resolved]
  - Product storage error [Not Recovered/Not Resolved]
  - Product prescribing issue [Not Recovered/Not Resolved]

NARRATIVE: CASE EVENT DATE: 201902
